FAERS Safety Report 9467426 (Version 1)
Quarter: 2013Q3

REPORT INFORMATION
  Report Type: Spontaneous
  Country: US (occurrence: None)
  Receive Date: 20130819
  Receipt Date: 20130819
  Transmission Date: 20140515
  Serious: Yes (Other)
  Sender: FDA-Public Use
  Company Number: None

PATIENT
  Age: 43 Year
  Sex: Female
  Weight: 60 kg

DRUGS (8)
  1. CIPROFLOXACIN [Suspect]
     Dosage: 400MG  TID  INTRAVENOUS
     Route: 042
     Dates: start: 20130817, end: 20130818
  2. CLONOPIN [Concomitant]
  3. ARIXTRA [Concomitant]
  4. NEURONTIN [Concomitant]
  5. MORPHIEN [Concomitant]
  6. SEROQUEL [Concomitant]
  7. VANCOMYCIN [Concomitant]
  8. AMBIEN [Concomitant]

REACTIONS (1)
  - Hypoaesthesia [None]
